FAERS Safety Report 9207231 (Version 1)
Quarter: 2013Q1

REPORT INFORMATION
  Report Type: Spontaneous
  Country: US (occurrence: None)
  Receive Date: 20120802
  Receipt Date: 20120802
  Transmission Date: 20140127
  Serious: Yes (Other)
  Sender: FDA-Public Use
  Company Number: AMAG201200038

PATIENT
  Age: 59 Year
  Sex: Female
  Weight: 91.2 kg

DRUGS (1)
  1. FERAHEME (FERUMOXYTOL) INJECTION, 510MG [Suspect]
     Indication: IRON DEFICIENCY ANAEMIA
     Route: 042
     Dates: start: 20111216, end: 20111216

REACTIONS (3)
  - Depressed level of consciousness [None]
  - Flushing [None]
  - Diarrhoea [None]
